FAERS Safety Report 9859949 (Version 1)
Quarter: 2014Q1

REPORT INFORMATION
  Report Type: Spontaneous
  Country: US (occurrence: US)
  Receive Date: 20140131
  Receipt Date: 20140131
  Transmission Date: 20141002
  Serious: No
  Sender: FDA-Public Use
  Company Number: US-GILEAD-2014-0093321

PATIENT
  Sex: Male

DRUGS (1)
  1. COMPLERA [Suspect]
     Indication: HIV INFECTION
     Dosage: 1 DF, UNK
     Route: 065

REACTIONS (1)
  - Lower limb fracture [Unknown]
